FAERS Safety Report 21349475 (Version 2)
Quarter: 2022Q3

REPORT INFORMATION
  Report Type: Report from Study
  Country: US (occurrence: US)
  Receive Date: 20220919
  Receipt Date: 20220925
  Transmission Date: 20221026
  Serious: No
  Sender: FDA-Public Use
  Company Number: US-BIOVITRUM-2022US10530

PATIENT
  Age: 23 Year
  Sex: Female

DRUGS (2)
  1. KINERET [Suspect]
     Active Substance: ANAKINRA
     Indication: Behcet^s syndrome
     Dates: start: 202208
  2. KINERET [Suspect]
     Active Substance: ANAKINRA
     Dates: start: 20220823

REACTIONS (5)
  - Adverse drug reaction [Unknown]
  - Blister [Unknown]
  - Injection site erythema [Unknown]
  - Injection site swelling [Unknown]
  - Off label use [Unknown]

NARRATIVE: CASE EVENT DATE: 20220823
